FAERS Safety Report 13986521 (Version 1)
Quarter: 2017Q3

REPORT INFORMATION
  Report Type: Spontaneous
  Country: US (occurrence: US)
  Receive Date: 20170919
  Receipt Date: 20170919
  Transmission Date: 20171128
  Serious: Yes (Hospitalization)
  Sender: FDA-Public Use
  Company Number: US-SA-2017SA170773

PATIENT
  Age: 16 Year
  Sex: Female

DRUGS (4)
  1. FERROUS SULFATE. [Suspect]
     Active Substance: FERROUS SULFATE
     Indication: SUICIDE ATTEMPT
     Route: 065
  2. OMEPRAZOLE. [Suspect]
     Active Substance: OMEPRAZOLE
     Indication: SUICIDE ATTEMPT
     Route: 065
  3. DIPHENHYDRAMINE. [Suspect]
     Active Substance: DIPHENHYDRAMINE
     Indication: SUICIDE ATTEMPT
     Route: 065
  4. IBUPROFEN. [Suspect]
     Active Substance: IBUPROFEN
     Indication: SUICIDE ATTEMPT
     Route: 065

REACTIONS (10)
  - Coagulopathy [Recovered/Resolved]
  - Toxicity to various agents [Recovered/Resolved]
  - Haematemesis [Recovered/Resolved]
  - Tachypnoea [Recovered/Resolved]
  - Suicide attempt [Unknown]
  - Abdominal tenderness [Recovered/Resolved]
  - Acute hepatic failure [Recovered/Resolved]
  - Tachycardia [Recovered/Resolved]
  - Hepatic encephalopathy [Recovered/Resolved]
  - Intentional overdose [Unknown]
